FAERS Safety Report 8460336-4 (Version None)
Quarter: 2012Q2

REPORT INFORMATION
  Report Type: 
  Country: None (occurrence: None)
  Receive Date: 20120323
  Receipt Date: 20111222
  Transmission Date: 20120825
  Serious: Yes (Other)
  Sender: FDA-Public Use
  Company Number: 163-21880-11093252

PATIENT
  Age: 83 Year
  Sex: Female
  Weight: 73.0291 kg

DRUGS (7)
  1. LEVOTHYROXINE SODIUM [Concomitant]
  2. INSULIN [Concomitant]
  3. LOPID [Concomitant]
  4. PRAVACHOL [Concomitant]
  5. REVLIMID [Suspect]
     Indication: 5Q MINUS SYNDROME
     Dosage: 5 MG, 1 IN 1 D, PO
     Route: 048
     Dates: start: 20110901, end: 20111130
  6. NEURONTIN [Concomitant]
  7. VITAMIN D [Concomitant]

REACTIONS (3)
  - PLATELET COUNT DECREASED [None]
  - FATIGUE [None]
  - SOMNOLENCE [None]
